FAERS Safety Report 8008254-X (Version None)
Quarter: 2011Q4

REPORT INFORMATION
  Report Type: 
  Country: None (occurrence: None)
  Receive Date: 20111227
  Receipt Date: 20111222
  Transmission Date: 20120403
  Serious: Yes (Death, Other)
  Sender: FDA-Public Use
  Company Number: DE-ROCHE-1024665

PATIENT
  Sex: Female

DRUGS (1)
  1. XELODA [Suspect]
     Indication: GASTROINTESTINAL CARCINOMA
     Route: 048
     Dates: start: 20110801

REACTIONS (2)
  - DEATH [None]
  - ABDOMINAL PAIN UPPER [None]
